FAERS Safety Report 14760589 (Version 2)
Quarter: 2018Q2

REPORT INFORMATION
  Report Type: Spontaneous
  Country: US (occurrence: US)
  Receive Date: 20180414
  Receipt Date: 20180422
  Transmission Date: 20180711
  Serious: No
  Sender: FDA-Public Use
  Company Number: US-TEVA-2018-US-882795

PATIENT
  Sex: Male

DRUGS (1)
  1. LEVALBUTEROL. [Suspect]
     Active Substance: LEVALBUTEROL
     Indication: OBLITERATIVE BRONCHIOLITIS
     Route: 065

REACTIONS (3)
  - Tongue discomfort [Unknown]
  - Paraesthesia oral [Unknown]
  - Dyspnoea [Unknown]
